FAERS Safety Report 14033015 (Version 3)
Quarter: 2017Q4

REPORT INFORMATION
  Report Type: Report from Study
  Country: CA (occurrence: CA)
  Receive Date: 20171003
  Receipt Date: 20171031
  Transmission Date: 20180321
  Serious: Yes (Other)
  Sender: FDA-Public Use
  Company Number: CA-JNJFOC-20170910583

PATIENT
  Age: 41 Year
  Sex: Female
  Weight: 48 kg

DRUGS (6)
  1. STELARA [Suspect]
     Active Substance: USTEKINUMAB
     Indication: CROHN^S DISEASE
     Route: 058
     Dates: start: 20170329
  2. STELARA [Suspect]
     Active Substance: USTEKINUMAB
     Indication: PSORIASIS
     Route: 058
     Dates: start: 20170329
  3. STELARA [Suspect]
     Active Substance: USTEKINUMAB
     Indication: PSORIASIS
     Dosage: STRENGTH = 90 MG
     Route: 058
  4. STELARA [Suspect]
     Active Substance: USTEKINUMAB
     Indication: CROHN^S DISEASE
     Dosage: STRENGTH = 90 MG
     Route: 058
  5. STELARA [Suspect]
     Active Substance: USTEKINUMAB
     Indication: CROHN^S DISEASE
     Route: 058
     Dates: start: 20171013
  6. STELARA [Suspect]
     Active Substance: USTEKINUMAB
     Indication: PSORIASIS
     Route: 058
     Dates: start: 20171013

REACTIONS (16)
  - Abdominal pain [Not Recovered/Not Resolved]
  - Nausea [Unknown]
  - Abnormal behaviour [Unknown]
  - Alopecia [Unknown]
  - Product use issue [Unknown]
  - Epilepsy [Not Recovered/Not Resolved]
  - Abdominal distension [Unknown]
  - Psoriasis [Unknown]
  - Asthenia [Unknown]
  - Off label use [Unknown]
  - General physical health deterioration [Recovering/Resolving]
  - Productive cough [Unknown]
  - Haemorrhage intracranial [Unknown]
  - Pneumocephalus [Unknown]
  - Frequent bowel movements [Unknown]
  - Skull fractured base [Unknown]

NARRATIVE: CASE EVENT DATE: 2017
